FAERS Safety Report 8262272-5 (Version None)
Quarter: 2012Q2

REPORT INFORMATION
  Report Type: 
  Country: None (occurrence: None)
  Receive Date: 20120405
  Receipt Date: 20120329
  Transmission Date: 20120825
  Serious: Yes (Death, Hospitalization)
  Sender: FDA-Public Use
  Company Number: US-ELI_LILLY_AND_COMPANY-US201203009149

PATIENT
  Sex: Male

DRUGS (2)
  1. ALIMTA [Suspect]
     Indication: NON-SMALL CELL LUNG CANCER
     Dosage: 500 MG/M2, UNK
     Dates: start: 20120312, end: 20120323
  2. CARBOPLATIN [Concomitant]
     Indication: NON-SMALL CELL LUNG CANCER
     Dosage: AUC 5, UNKNOWN
     Route: 065
     Dates: start: 20120312

REACTIONS (5)
  - DECREASED APPETITE [None]
  - ASTHENIA [None]
  - HAEMOPTYSIS [None]
  - DEATH [None]
  - FEELING ABNORMAL [None]
